FAERS Safety Report 4889699-3 (Version None)
Quarter: 2006Q1

REPORT INFORMATION
  Report Type: 
  Country: None (occurrence: None)
  Receive Date: 20060124
  Receipt Date: 20051007
  Transmission Date: 20060701
  Serious: No
  Sender: FDA-Public Use
  Company Number: US-GLAXOSMITHKLINE-A0577527A

PATIENT
  Age: 27 Year
  Sex: Male

DRUGS (3)
  1. LEXIVA [Suspect]
     Indication: HIV INFECTION
     Dosage: 2TAB TWICE PER DAY
     Route: 048
     Dates: start: 20050930, end: 20051001
  2. COMBIVIR [Concomitant]
  3. XANAX [Concomitant]

REACTIONS (2)
  - AMNESIA [None]
  - MOOD ALTERED [None]
